FAERS Safety Report 7259609-2 (Version None)
Quarter: 2011Q1

REPORT INFORMATION
  Report Type: 
  Country: None (occurrence: None)
  Receive Date: 20110130
  Receipt Date: 20101124
  Transmission Date: 20110831
  Serious: No
  Sender: FDA-Public Use
  Company Number: US-ABBOTT-10P-163-0617336-00

PATIENT
  Sex: Female
  Weight: 51.756 kg

DRUGS (5)
  1. ASACOL [Concomitant]
     Indication: PRODUCT USED FOR UNKNOWN INDICATION
  2. LOMOTIL [Concomitant]
     Indication: DIARRHOEA
  3. BENTYL [Concomitant]
     Indication: PRODUCT USED FOR UNKNOWN INDICATION
  4. HUMIRA [Suspect]
     Indication: CROHN'S DISEASE
     Route: 058
     Dates: start: 20090801, end: 20091201
  5. LORTAB [Concomitant]
     Indication: PAIN

REACTIONS (5)
  - SCAB [None]
  - SUBCORNEAL PUSTULAR DERMATOSIS [None]
  - SKIN LESION [None]
  - SKIN FISSURES [None]
  - ALOPECIA [None]
